FAERS Safety Report 19614512 (Version 2)
Quarter: 2021Q3

REPORT INFORMATION
  Report Type: Report from Study
  Country: US (occurrence: US)
  Receive Date: 20210727
  Receipt Date: 20210813
  Transmission Date: 20211014
  Serious: Yes (Life-Threatening, Hospitalization, Disabling)
  Sender: FDA-Public Use
  Company Number: US-TG THERAPEUTICS INC.-TGT002037

PATIENT
  Age: 70 Year
  Sex: Male
  Weight: 98.87 kg

DRUGS (12)
  1. UBLITUXIMAB [Suspect]
     Active Substance: UBLITUXIMAB
     Indication: CHRONIC LYMPHOCYTIC LEUKAEMIA
     Dosage: 900 MILLIGRAM
     Route: 042
     Dates: start: 20201209
  2. MOTRIN [Suspect]
     Active Substance: IBUPROFEN
     Indication: PAIN
     Dosage: 400 MILLIGRAM, PRN, Q4?6HOURS
     Route: 048
     Dates: start: 20210628, end: 20210706
  3. ASPIRIN (E.C.) [Concomitant]
     Active Substance: ASPIRIN
     Indication: HEADACHE
  4. NAPROSYNE [Suspect]
     Active Substance: NAPROXEN
     Indication: HEADACHE
  5. LEVOFLOXACIN. [Concomitant]
     Active Substance: LEVOFLOXACIN
     Dosage: 750 MILLIGRAM, QD
     Route: 048
     Dates: start: 20210709, end: 20210712
  6. ASPIRIN (E.C.) [Concomitant]
     Active Substance: ASPIRIN
     Indication: PAIN
     Dosage: 325 MILLIGRAM, PRN, QD
     Route: 048
     Dates: start: 20210628, end: 20210706
  7. NAPROSYNE [Suspect]
     Active Substance: NAPROXEN
     Indication: PAIN
     Dosage: 375 MILLIGRAM, BID, PRN
     Route: 048
     Dates: start: 20210706, end: 20210712
  8. TYLENOL [Concomitant]
     Active Substance: ACETAMINOPHEN
     Indication: HEADACHE
  9. UMBRALISIB [Suspect]
     Active Substance: UMBRALISIB
     Indication: CHRONIC LYMPHOCYTIC LEUKAEMIA
     Dosage: 800 MILLIGRAM, QD
     Route: 048
     Dates: start: 20201209
  10. VENETOCLAX. [Suspect]
     Active Substance: VENETOCLAX
     Indication: CHRONIC LYMPHOCYTIC LEUKAEMIA
     Dosage: 400 MILLIGRAM, QD
     Route: 048
     Dates: start: 20210303
  11. MOTRIN [Suspect]
     Active Substance: IBUPROFEN
     Indication: HEADACHE
  12. TYLENOL [Concomitant]
     Active Substance: ACETAMINOPHEN
     Indication: PAIN
     Dosage: 500 MILLIGRAM, PRN, Q6HOURS, 1?2 TAB
     Route: 048
     Dates: start: 20210628, end: 20210706

REACTIONS (2)
  - Pneumonia legionella [Recovered/Resolved]
  - Duodenal ulcer haemorrhage [Recovered/Resolved]

NARRATIVE: CASE EVENT DATE: 20210712
